FAERS Safety Report 7064888-0 (Version None)
Quarter: 2010Q4

REPORT INFORMATION
  Report Type: 
  Country: None (occurrence: None)
  Receive Date: 20101027
  Receipt Date: 20101020
  Transmission Date: 20110411
  Serious: Yes (Hospitalization)
  Sender: FDA-Public Use
  Company Number: US-SANOFI-AVENTIS-2010SA064267

PATIENT
  Age: 48 Year
  Sex: Female

DRUGS (1)
  1. LOVENOX [Suspect]
     Indication: CYTOREDUCTIVE SURGERY
     Route: 065
     Dates: start: 20100401

REACTIONS (1)
  - POST PROCEDURAL COMPLICATION [None]
